FAERS Safety Report 6069297-9 (Version None)
Quarter: 2009Q1

REPORT INFORMATION
  Report Type: 
  Country: None (occurrence: None)
  Receive Date: 20090206
  Receipt Date: 20090127
  Transmission Date: 20090719
  Serious: Yes (Other)
  Sender: FDA-Public Use
  Company Number: FR-PFIZER INC-2008159494

PATIENT

DRUGS (2)
  1. DOSTINEX [Suspect]
     Indication: PROLACTINOMA
     Dosage: UNK
     Dates: start: 20081124, end: 20081219
  2. ETONOGESTREL [Concomitant]
     Dosage: UNK
     Dates: start: 20081219

REACTIONS (2)
  - AGGRESSION [None]
  - HALLUCINATION, VISUAL [None]
